FAERS Safety Report 12633737 (Version 1)
Quarter: 2016Q3

REPORT INFORMATION
  Report Type: Spontaneous
  Country: US (occurrence: None)
  Receive Date: 20160808
  Receipt Date: 20160808
  Transmission Date: 20161109
  Serious: Yes (Life-Threatening, Hospitalization, Disabling, Other)
  Sender: FDA-Public Use
  Company Number: None

PATIENT
  Age: 57 Year
  Sex: Male
  Weight: 102.06 kg

DRUGS (19)
  1. SPIRONOLACTONE. [Concomitant]
     Active Substance: SPIRONOLACTONE
  2. TREXALL [Concomitant]
     Active Substance: METHOTREXATE SODIUM
  3. SIMPONI [Concomitant]
     Active Substance: GOLIMUMAB
  4. PANTOPRAZOLE [Concomitant]
     Active Substance: PANTOPRAZOLE SODIUM
  5. SEAWEE EXTRACT [Concomitant]
  6. POTASSIUM CITRATE. [Concomitant]
     Active Substance: POTASSIUM CITRATE
  7. NOVOLOG [Concomitant]
     Active Substance: INSULIN ASPART
  8. GOLD SHOTS [Concomitant]
  9. IRON/CREAM [Concomitant]
  10. INIS SHEA BUTTER [Concomitant]
  11. FUROSEMIDE. [Concomitant]
     Active Substance: FUROSEMIDE
  12. REMICADE [Concomitant]
     Active Substance: INFLIXIMAB
  13. ORENCIA [Concomitant]
     Active Substance: ABATACEPT
  14. METHOTREXATE. [Suspect]
     Active Substance: METHOTREXATE
     Indication: RHEUMATOID ARTHRITIS
     Route: 048
     Dates: start: 19990110, end: 20130930
  15. LEVEMIR [Concomitant]
     Active Substance: INSULIN DETEMIR
  16. HUMIRA [Concomitant]
     Active Substance: ADALIMUMAB
  17. ZINC SULFATE [Concomitant]
     Active Substance: ZINC SULFATE\ZINC SULFATE ANHYDROUS
  18. FLEX TOUCH [Concomitant]
  19. ENBREL [Concomitant]
     Active Substance: ETANERCEPT

REACTIONS (2)
  - Hernia repair [None]
  - Liver disorder [None]

NARRATIVE: CASE EVENT DATE: 20130930
